FAERS Safety Report 5957689-5 (Version None)
Quarter: 2008Q4

REPORT INFORMATION
  Report Type: 
  Country: None (occurrence: None)
  Receive Date: 20081117
  Receipt Date: 20081105
  Transmission Date: 20090506
  Serious: Yes (Life-Threatening, Hospitalization, Other)
  Sender: FDA-Public Use
  Company Number: URSO-2008-098FUP#2

PATIENT
  Age: 82 Year
  Sex: Female

DRUGS (11)
  1. URSO 250 [Suspect]
     Indication: CHOLELITHIASIS
     Dosage: 200 MG/DAY ORAL
     Route: 048
     Dates: start: 19890101, end: 20080815
  2. ENALAPRIL MALEATE [Suspect]
     Indication: HYPERTENSION
     Dosage: 5 MG ORAL
     Route: 048
     Dates: start: 20080416, end: 20080815
  3. KETOPROFEN [Suspect]
     Dosage: TOPICAL
     Route: 061
     Dates: start: 19940101, end: 20080815
  4. AMLODIPINE BESYLATE [Suspect]
     Indication: HYPERTENSION
     Dosage: 5 MG ORAL
     Route: 048
     Dates: start: 20030101
  5. MUCODYNE (CARBOCISTEINE) [Suspect]
     Indication: ASTHMA
     Dosage: 1500 MG ORAL
     Route: 048
     Dates: start: 20070601, end: 20080815
  6. UNIPHYL [Suspect]
     Indication: ASTHMA
     Dosage: 200 DF ORAL
     Route: 048
     Dates: start: 20070601, end: 20080815
  7. CLARITIN [Suspect]
     Indication: RHINITIS ALLERGIC
     Dosage: 10 MG ORAL
     Route: 048
     Dates: start: 20070801, end: 20080815
  8. SINGULAIR [Suspect]
     Indication: ASTHMA
     Dosage: 10 MG ORAL
     Route: 048
     Dates: start: 20070801, end: 20080815
  9. ASPIRIN [Concomitant]
  10. INTAL [Concomitant]
  11. PULMICORT [Concomitant]

REACTIONS (7)
  - ASTHMA [None]
  - CEREBRAL INFARCTION [None]
  - HYPERTENSION [None]
  - LYMPHOCYTE STIMULATION TEST POSITIVE [None]
  - RHINITIS ALLERGIC [None]
  - TUBULOINTERSTITIAL NEPHRITIS [None]
  - VASCULITIS [None]
